FAERS Safety Report 10336370 (Version 2)
Quarter: 2014Q4

REPORT INFORMATION
  Report Type: Spontaneous
  Country: US (occurrence: US)
  Receive Date: 20140723
  Receipt Date: 20141023
  Transmission Date: 20150528
  Serious: No
  Sender: FDA-Public Use
  Company Number: US-GILEAD-2014-0109680

PATIENT
  Age: 40 Year
  Sex: Female

DRUGS (3)
  1. REMODULIN [Concomitant]
     Active Substance: TREPROSTINIL
  2. LETAIRIS [Suspect]
     Active Substance: AMBRISENTAN
     Indication: SYSTEMIC LUPUS ERYTHEMATOSUS
     Dosage: 5 MG, QD
     Route: 065
     Dates: start: 20100212
  3. REVATIO [Concomitant]
     Active Substance: SILDENAFIL CITRATE

REACTIONS (10)
  - Diarrhoea [Unknown]
  - Insomnia [Unknown]
  - Abdominal distension [Unknown]
  - Pain in extremity [Unknown]
  - Headache [Unknown]
  - Oedema peripheral [Unknown]
  - Mucous stools [Unknown]
  - Cough [Unknown]
  - Hypoaesthesia [Unknown]
  - Dyspnoea [Unknown]
